FAERS Safety Report 23813875 (Version 2)
Quarter: 2024Q4

REPORT INFORMATION
  Report Type: Report from Study
  Country: CA (occurrence: CA)
  Receive Date: 20240503
  Receipt Date: 20241223
  Transmission Date: 20250114
  Serious: Yes (Other)
  Sender: SANDOZ
  Company Number: CA-SANDOZ-SDZ2024CA044749

PATIENT
  Sex: Male

DRUGS (2)
  1. HYRIMOZ [Suspect]
     Active Substance: ADALIMUMAB-ADAZ
     Dosage: 40 MG, QW (PRE-FILLED SYRINGE)
     Route: 058
  2. HYRIMOZ [Suspect]
     Active Substance: ADALIMUMAB-ADAZ
     Indication: Crohn^s disease
     Dosage: 40 MG EVERY 2 WEEKS.;EVERY TWO WEEKS
     Route: 058
     Dates: start: 20220503

REACTIONS (5)
  - Uveitis [Unknown]
  - Haematochezia [Unknown]
  - Mucous stools [Unknown]
  - Abdominal pain [Unknown]
  - Off label use [Unknown]
